FAERS Safety Report 25716432 (Version 1)
Quarter: 2025Q3

REPORT INFORMATION
  Report Type: Spontaneous
  Country: US (occurrence: US)
  Receive Date: 20250822
  Receipt Date: 20250822
  Transmission Date: 20251021
  Serious: No
  Sender: EISAI
  Company Number: US-Eisai-EC-2025-194701

PATIENT

DRUGS (2)
  1. LEQEMBI [Suspect]
     Active Substance: LECANEMAB-IRMB
     Indication: Product used for unknown indication
  2. LEQEMBI [Suspect]
     Active Substance: LECANEMAB-IRMB

REACTIONS (1)
  - Infusion related reaction [Unknown]
